FAERS Safety Report 19173294 (Version 1)
Quarter: 2021Q2

REPORT INFORMATION
  Report Type: Spontaneous
  Country: US (occurrence: US)
  Receive Date: 20210423
  Receipt Date: 20210423
  Transmission Date: 20210717
  Serious: Yes (Death)
  Sender: FDA-Public Use
  Company Number: US-PROGENICS PHARMACEUTICALS/LANTHEUS HOLDINGS-LMI-2021-00309

PATIENT
  Sex: Female

DRUGS (1)
  1. AZEDRA [Suspect]
     Active Substance: IOBENGUANE I-131
     Indication: PRODUCT USED FOR UNKNOWN INDICATION
     Dosage: UNK; DOSIMETRY DOSE
     Route: 065
     Dates: start: 20201013

REACTIONS (1)
  - Disease progression [Fatal]
